FAERS Safety Report 18730198 (Version 3)
Quarter: 2021Q2

REPORT INFORMATION
  Report Type: Spontaneous
  Country: PT (occurrence: PT)
  Receive Date: 20210112
  Receipt Date: 20210618
  Transmission Date: 20210717
  Serious: Yes (Hospitalization, Other)
  Sender: FDA-Public Use
  Company Number: PT-MYLANLABS-2020M1106835

PATIENT
  Age: 8 Decade
  Sex: Male

DRUGS (15)
  1. CLARITHROMYCIN. [Concomitant]
     Active Substance: CLARITHROMYCIN
     Indication: BRAIN ABSCESS
     Dosage: UNK
     Dates: start: 201807
  2. LINEZOLID. [Suspect]
     Active Substance: LINEZOLID
     Dosage: UNK
     Route: 042
     Dates: start: 201804, end: 201807
  3. CLARITHROMYCIN. [Concomitant]
     Active Substance: CLARITHROMYCIN
     Indication: RHODOCOCCUS INFECTION
  4. ENTECAVIR. [Concomitant]
     Active Substance: ENTECAVIR
     Indication: CHRONIC HEPATITIS B
     Dosage: UNK
  5. RIFAMPICIN [Concomitant]
     Active Substance: RIFAMPIN
     Indication: PNEUMONIA NECROTISING
     Dosage: UNK
  6. AMOXICILLIN CLAVULANIC ACID [Concomitant]
     Active Substance: AMOXICILLIN\CLAVULANIC ACID
     Indication: PNEUMONIA NECROTISING
     Dosage: UNK
     Route: 042
  7. DOXYCYCLINE. [Concomitant]
     Active Substance: DOXYCYCLINE
     Indication: BRAIN ABSCESS
     Dosage: UNK
     Dates: start: 201901
  8. GENTAMYCIN                         /00047101/ [Suspect]
     Active Substance: GENTAMICIN
     Indication: BRAIN ABSCESS
     Dosage: UNK
     Dates: start: 2018, end: 201901
  9. AZITHROMYCIN ANHYDROUS. [Concomitant]
     Active Substance: AZITHROMYCIN ANHYDROUS
     Indication: PNEUMONIA NECROTISING
     Dosage: UNK
  10. LEVOFLOXACIN. [Suspect]
     Active Substance: LEVOFLOXACIN
     Indication: PNEUMONIA NECROTISING
     Dosage: UNK
  11. LINEZOLID. [Suspect]
     Active Substance: LINEZOLID
     Indication: RHODOCOCCUS INFECTION
     Dosage: UNK
     Route: 065
     Dates: start: 2018, end: 201807
  12. ERTAPENEM. [Concomitant]
     Active Substance: ERTAPENEM SODIUM
     Indication: BRAIN ABSCESS
     Dosage: UNK
  13. GENTAMYCIN                         /00047101/ [Suspect]
     Active Substance: GENTAMICIN
     Indication: RHODOCOCCUS INFECTION
     Dosage: UNK
     Route: 042
     Dates: start: 201804, end: 201907
  14. ERTAPENEM. [Concomitant]
     Active Substance: ERTAPENEM SODIUM
     Indication: RHODOCOCCUS INFECTION
     Dosage: UNK
     Route: 042
     Dates: start: 201804
  15. LEVOTHYROXINE. [Concomitant]
     Active Substance: LEVOTHYROXINE
     Indication: HYPOTHYROIDISM
     Dosage: UNK

REACTIONS (5)
  - Nephropathy toxic [Unknown]
  - Product use issue [Recovered/Resolved]
  - Ototoxicity [Unknown]
  - Myelosuppression [Unknown]
  - Infection [Unknown]

NARRATIVE: CASE EVENT DATE: 201907
